FAERS Safety Report 4843006-0 (Version None)
Quarter: 2005Q4

REPORT INFORMATION
  Report Type: 
  Country: None (occurrence: None)
  Receive Date: 20051201
  Receipt Date: 20010712
  Transmission Date: 20060501
  Serious: Yes (Hospitalization)
  Sender: FDA-Public Use
  Company Number: US-ROCHE-264179

PATIENT
  Age: 49 Year
  Sex: Male
  Weight: 95.9 kg

DRUGS (14)
  1. INTERFERON ALFA-2A [Suspect]
     Route: 058
     Dates: start: 20010705, end: 20011126
  2. INTERFERON ALFA-2A [Suspect]
     Route: 058
     Dates: start: 20011205
  3. RIBAVIRIN [Suspect]
     Dosage: WITH FOOD.
     Route: 048
     Dates: start: 20010705, end: 20011126
  4. RIBAVIRIN [Suspect]
     Dosage: WITH FOOD.
     Route: 048
     Dates: start: 20011205
  5. KALETRA [Concomitant]
     Dosage: DOSAGE ALSO DESCRIBED AS THREE TABS.
     Dates: start: 20010328
  6. ZERIT [Concomitant]
     Dates: start: 20010328
  7. EPIVIR [Concomitant]
     Dates: start: 20010328
  8. PROCARDIA XL [Concomitant]
     Dates: start: 20010328
  9. ZIAGEN [Concomitant]
     Dates: start: 20010328
  10. WELLBUTRIN [Concomitant]
     Dates: start: 20010910
  11. MONOPRIL [Concomitant]
     Dates: start: 20010910
  12. CIPROFLOXACIN [Concomitant]
     Dates: start: 20010917
  13. AMBIEN [Concomitant]
     Dates: start: 20010720
  14. PROTONIX [Concomitant]
     Dates: start: 20010919

REACTIONS (14)
  - ABDOMINAL PAIN UPPER [None]
  - BLOOD SODIUM DECREASED [None]
  - CHOLECYSTITIS [None]
  - DECREASED APPETITE [None]
  - DEHYDRATION [None]
  - DEPRESSION [None]
  - HEART RATE INCREASED [None]
  - HYPERTENSION [None]
  - NAUSEA [None]
  - NEPHROLITHIASIS [None]
  - PYREXIA [None]
  - URINARY TRACT INFECTION [None]
  - VARICES OESOPHAGEAL [None]
  - VOMITING [None]
